FAERS Safety Report 7863002 (Version 3)
Quarter: 2014Q1

REPORT INFORMATION
  Report Type: Spontaneous
  Country: US (occurrence: US)
  Receive Date: 20110318
  Receipt Date: 20140325
  Transmission Date: 20141002
  Serious: Yes (Other)
  Sender: FDA-Public Use
  Company Number: US-B.I. PHARMACEUTICALS,INC./RIDGEFIELD-2011-BP-06457BP

PATIENT
  Age: 58 Year
  Sex: Male
  Weight: 124.74 kg

DRUGS (8)
  1. PRADAXA [Suspect]
     Indication: ATRIAL FIBRILLATION
     Dosage: 300 MG
     Route: 048
     Dates: start: 20110209
  2. LISINOPRIL [Concomitant]
     Route: 048
  3. COREG [Concomitant]
     Route: 048
  4. ASA [Concomitant]
     Route: 048
  5. SPIRALDACTONE [Concomitant]
     Dosage: 100 MG
     Route: 048
  6. SPIRALDACTONE [Concomitant]
     Dosage: 200 MG
     Route: 048
     Dates: start: 20110216
  7. LASIX [Concomitant]
     Route: 048
     Dates: end: 20110216
  8. POTASSIUM CHLORIDE [Concomitant]
     Route: 065

REACTIONS (9)
  - Haemorrhage [Unknown]
  - Haematoma [Unknown]
  - Ischaemic stroke [Unknown]
  - Renal pain [Not Recovered/Not Resolved]
  - Arthralgia [Not Recovered/Not Resolved]
  - Joint swelling [Not Recovered/Not Resolved]
  - Rectal haemorrhage [Not Recovered/Not Resolved]
  - Epistaxis [Unknown]
  - Gynaecomastia [Unknown]
